APPROVED DRUG PRODUCT: BUPROPION HYDROCHLORIDE
Active Ingredient: BUPROPION HYDROCHLORIDE
Strength: 75MG
Dosage Form/Route: TABLET;ORAL
Application: A075613 | Product #002
Applicant: INVATECH PHARMA SOLUTIONS LLC
Approved: Oct 10, 2000 | RLD: No | RS: No | Type: DISCN